FAERS Safety Report 6594214-2 (Version None)
Quarter: 2010Q1

REPORT INFORMATION
  Report Type: 
  Country: None (occurrence: None)
  Receive Date: 20100222
  Receipt Date: 20100211
  Transmission Date: 20100710
  Serious: Yes (Other)
  Sender: FDA-Public Use
  Company Number: US-PFIZER INC-2008078493

PATIENT
  Sex: Male
  Weight: 72.6 kg

DRUGS (7)
  1. LIPITOR [Suspect]
     Indication: BLOOD CHOLESTEROL INCREASED
     Dosage: 40 MG, UNK
  2. LOPID [Suspect]
     Indication: BLOOD CHOLESTEROL INCREASED
  3. CELEBREX [Suspect]
     Indication: ARTHRITIS
  4. ZOLOFT [Concomitant]
     Indication: DEPRESSION
  5. GLYBURIDE [Concomitant]
     Indication: DIABETES MELLITUS
     Dosage: UNK
  6. ATENOLOL [Concomitant]
     Indication: HYPERTENSION
     Dosage: UNK
  7. METFORMIN [Concomitant]
     Dosage: UNK

REACTIONS (19)
  - ABASIA [None]
  - ACCIDENT [None]
  - AMNESIA [None]
  - BLOOD CHOLESTEROL INCREASED [None]
  - BLOOD CREATINE PHOSPHOKINASE INCREASED [None]
  - BLOOD GLUCOSE INCREASED [None]
  - BLOOD TRIGLYCERIDES INCREASED [None]
  - DEPRESSION [None]
  - DRUG INTERACTION [None]
  - GLOMERULAR FILTRATION RATE DECREASED [None]
  - ILL-DEFINED DISORDER [None]
  - INSOMNIA [None]
  - LIBIDO DISORDER [None]
  - MICROALBUMINURIA [None]
  - MUSCLE DISORDER [None]
  - MUSCLE SPASMS [None]
  - MYALGIA [None]
  - TOTAL CHOLESTEROL/HDL RATIO DECREASED [None]
  - VISUAL IMPAIRMENT [None]
